FAERS Safety Report 9061198 (Version 2)
Quarter: 2013Q1

REPORT INFORMATION
  Report Type: Spontaneous
  Country: BR (occurrence: BR)
  Receive Date: 20130213
  Receipt Date: 20130222
  Transmission Date: 20140127
  Serious: Yes (Other)
  Sender: FDA-Public Use
  Company Number: BR-AMGEN-BRASP2013009142

PATIENT
  Age: 68 Year
  Sex: Male
  Weight: 75 kg

DRUGS (7)
  1. ENBREL [Suspect]
     Indication: RHEUMATOID ARTHRITIS
     Dosage: 25 MG, 2X/WEEK
     Dates: start: 201109
  2. ENBREL [Suspect]
     Dosage: 50 MG, ONCE WEEKLY
     Route: 058
     Dates: start: 201207, end: 201209
  3. ENBREL [Suspect]
     Dosage: UNK
     Dates: start: 201210
  4. CHLOROQUINE [Concomitant]
     Dosage: 400 MG, 1X/DAY
     Dates: start: 201107
  5. METHOTREXATE [Concomitant]
     Dosage: 6 TABLETS OF STRENGTH 2.5 MG (15 MG) ONCE WEEKLY
     Dates: start: 201107
  6. VITAMIN D /00107901/ [Concomitant]
     Dosage: 4 DROPS, 1X/DAY
  7. PREDNISONE [Concomitant]
     Dosage: UNK

REACTIONS (2)
  - Pain [Unknown]
  - Malignant melanoma [Unknown]
